FAERS Safety Report 24853398 (Version 1)
Quarter: 2025Q1

REPORT INFORMATION
  Report Type: Report from Study
  Country: SA (occurrence: SA)
  Receive Date: 20250117
  Receipt Date: 20250117
  Transmission Date: 20250408
  Serious: Yes (Death, Hospitalization)
  Sender: BIOGEN
  Company Number: SA-BIOGEN-2024BI01295257

PATIENT
  Age: 0 Year
  Sex: Female
  Weight: 7 kg

DRUGS (1)
  1. SPINRAZA [Suspect]
     Active Substance: NUSINERSEN
     Indication: Spinal muscular atrophy
     Route: 050
     Dates: start: 20241210

REACTIONS (3)
  - Cardio-respiratory arrest [Fatal]
  - Acute respiratory distress syndrome [Unknown]
  - Pneumonia [Unknown]

NARRATIVE: CASE EVENT DATE: 20241225
